FAERS Safety Report 5974919-4 (Version None)
Quarter: 2008Q4

REPORT INFORMATION
  Report Type: 
  Country: None (occurrence: None)
  Receive Date: 20081202
  Receipt Date: 20081127
  Transmission Date: 20090506
  Serious: Yes (Life-Threatening)
  Sender: FDA-Public Use
  Company Number: DE-PFIZER INC-2008100638

PATIENT
  Age: 68 Year
  Sex: Male

DRUGS (1)
  1. INSPRA [Suspect]
     Route: 048

REACTIONS (5)
  - ARTERIAL THROMBOSIS LIMB [None]
  - BLOOD CREATININE INCREASED [None]
  - BLOOD POTASSIUM INCREASED [None]
  - INTERMITTENT CLAUDICATION [None]
  - THROMBOCYTOPENIA [None]
